FAERS Safety Report 20044515 (Version 3)
Quarter: 2022Q1

REPORT INFORMATION
  Report Type: Spontaneous
  Country: None (occurrence: DE)
  Receive Date: 20211108
  Receipt Date: 20220126
  Transmission Date: 20220423
  Serious: Yes (Other)
  Sender: FDA-Public Use
  Company Number: DE-Stallergenes SAS-2121586

PATIENT
  Sex: Female

DRUGS (2)
  1. UNSPECIFIED INGREDIENT [Suspect]
     Active Substance: UNSPECIFIED INGREDIENT
  2. ORALAIR [Suspect]
     Active Substance: ANTHOXANTHUM ODORATUM POLLEN\DACTYLIS GLOMERATA POLLEN\LOLIUM PERENNE POLLEN\PHLEUM PRATENSE POLLEN\
     Route: 048
     Dates: start: 20210928

REACTIONS (7)
  - Laryngeal oedema [Unknown]
  - Paraesthesia oral [Unknown]
  - Swollen tongue [Recovered/Resolved]
  - Abdominal discomfort [Unknown]
  - Pharyngeal swelling [Unknown]
  - Abdominal discomfort [Recovered/Resolved]
  - Throat irritation [Recovered/Resolved]

NARRATIVE: CASE EVENT DATE: 20210921
